FAERS Safety Report 7525549-4 (Version None)
Quarter: 2011Q2

REPORT INFORMATION
  Report Type: 
  Country: None (occurrence: None)
  Receive Date: 20110606
  Receipt Date: 20110602
  Transmission Date: 20111010
  Serious: Yes (Other)
  Sender: FDA-Public Use
  Company Number: HR-ABBOTT-11P-216-0713237-00

PATIENT
  Sex: Male
  Weight: 68 kg

DRUGS (7)
  1. ROCALTROL [Concomitant]
     Indication: PRODUCT USED FOR UNKNOWN INDICATION
  2. HUMIRA [Suspect]
     Indication: PSORIATIC ARTHROPATHY
     Dates: start: 20110118, end: 20110201
  3. FOSAVANCE [Concomitant]
     Indication: PRODUCT USED FOR UNKNOWN INDICATION
  4. ALLOPURINOL [Concomitant]
     Indication: PRODUCT USED FOR UNKNOWN INDICATION
  5. INSULATARD [Concomitant]
     Indication: DIABETES MELLITUS
     Dosage: 16+0+14 IU
     Dates: start: 19830101
  6. ACTRAPID [Concomitant]
     Indication: DIABETES MELLITUS
     Dates: start: 19830101
  7. LISINOPRIL [Concomitant]
     Indication: PRODUCT USED FOR UNKNOWN INDICATION

REACTIONS (3)
  - DIABETES MELLITUS INADEQUATE CONTROL [None]
  - HYPERGLYCAEMIA [None]
  - ALANINE AMINOTRANSFERASE INCREASED [None]
